FAERS Safety Report 23271921 (Version 1)
Quarter: 2023Q4

REPORT INFORMATION
  Report Type: Spontaneous
  Country: CN (occurrence: CN)
  Receive Date: 20231207
  Receipt Date: 20231207
  Transmission Date: 20240110
  Serious: Yes (Hospitalization)
  Sender: FDA-Public Use
  Company Number: CN-JNJFOC-20231182714

PATIENT
  Age: 67 Year
  Sex: Female
  Weight: 64 kg

DRUGS (4)
  1. DARZALEX [Suspect]
     Active Substance: DARATUMUMAB
     Indication: Chemotherapy
     Dosage: VIA INFUSION PUMP (ALSO REPORTED AS D1 Q 28D)
     Route: 042
     Dates: start: 20230526, end: 20230610
  2. DARZALEX [Suspect]
     Active Substance: DARATUMUMAB
     Indication: Plasma cell myeloma
  3. POMALIDOMIDE [Suspect]
     Active Substance: POMALIDOMIDE
     Indication: Chemotherapy
     Dosage: TRADE NAME: ANYUE?(ALSO REPORTED AS 4 MG D1-21)
     Route: 048
     Dates: start: 20230526, end: 20230610
  4. POMALIDOMIDE [Suspect]
     Active Substance: POMALIDOMIDE
     Indication: Plasma cell myeloma

REACTIONS (1)
  - Myelosuppression [Recovering/Resolving]

NARRATIVE: CASE EVENT DATE: 20230527
